FAERS Safety Report 8658353 (Version 3)
Quarter: 2012Q4

REPORT INFORMATION
  Report Type: 
  Country: US (occurrence: US)
  Receive Date: 20120710
  Receipt Date: 20120913
  Transmission Date: 20130627
  Serious: No
  Sender: FDA-Public Use
  Company Number: US-ASTRAZENECA-2012SE43777

PATIENT
  Age: 67 Year
  Sex: Female

DRUGS (2)
  1. SYMBICORT PMDI [Suspect]
     Route: 055
  2. ATROVENT [Suspect]
     Route: 065

REACTIONS (4)
  - Aphthous stomatitis [Recovered/Resolved]
  - Halo vision [Unknown]
  - Adverse event [Unknown]
  - Stress [Unknown]
